FAERS Safety Report 7589829-9 (Version None)
Quarter: 2011Q3

REPORT INFORMATION
  Report Type: 
  Country: None (occurrence: None)
  Receive Date: 20110705
  Receipt Date: 20080121
  Transmission Date: 20111222
  Serious: Yes (Death, Other)
  Sender: FDA-Public Use
  Company Number: US-BAYER-2011-008849

PATIENT
  Age: 68 Year
  Sex: Female
  Weight: 104 kg

DRUGS (27)
  1. PROPOFOL [Concomitant]
     Dosage: UNK
     Dates: start: 20051104
  2. ULTRAM [Concomitant]
     Dosage: 50 MG, AS NEEDED
  3. ACTOS [Concomitant]
     Dosage: 30 MG ONCE DAILY
  4. VERSED [Concomitant]
     Dosage: UNK
     Dates: start: 20051104, end: 20051104
  5. SUFENTANIL CITRATE [Concomitant]
     Dosage: UNK
     Dates: start: 20051104, end: 20051104
  6. PAVULON [Concomitant]
     Dosage: UNK
     Dates: start: 20051104, end: 20051104
  7. CONTRAST MEDIA [Suspect]
     Indication: CATHETERISATION CARDIAC
     Dosage: UNK
     Dates: start: 20051101
  8. TRASYLOL [Suspect]
     Dosage: 50 ML/HR INFUSION
     Route: 042
     Dates: start: 20051104, end: 20051104
  9. IMDUR [Concomitant]
     Dosage: 60 MG ONCE DAILY
  10. TRIDIL [Concomitant]
     Dosage: UNK
     Dates: start: 20051104
  11. TRASYLOL [Suspect]
     Indication: CORONARY ARTERY BYPASS
     Dosage: 2 ML, ONCE, TEST DOSE
     Route: 042
     Dates: start: 20051104, end: 20051104
  12. LIPITOR [Concomitant]
     Dosage: 20 MG ONCE AT BEDTIME
  13. EPHEDRINE [Concomitant]
     Dosage: UNK
     Dates: start: 20051104, end: 20051104
  14. SYNTHROID [Concomitant]
     Dosage: 88 MCG/24HR, UNK
  15. VANCOMYCIN [Concomitant]
     Dosage: 2 G, UNK
     Dates: start: 20051104, end: 20051104
  16. TRASYLOL [Suspect]
     Dosage: 200 ML PUMP PRIME
     Route: 042
     Dates: start: 20051104, end: 20051104
  17. ZESTRIL [Concomitant]
     Dosage: 10 MG ONCE DAILY
  18. NOVOLOG [Concomitant]
     Dosage: 30/70
  19. HEPARIN [Concomitant]
     Dosage: UNK
     Dates: start: 20051104, end: 20051104
  20. ISOFLURANE [Concomitant]
     Dosage: UNK
     Dates: start: 20051104, end: 20051104
  21. EPINEPHRINE [Concomitant]
     Dosage: UNK
     Dates: start: 20051104
  22. CONTRAST MEDIA [Suspect]
     Indication: CARDIAC VENTRICULOGRAM LEFT
  23. CONTRAST MEDIA [Suspect]
     Indication: ARTERIOGRAM CORONARY
  24. LEXAPRO [Concomitant]
     Dosage: 10 MG ONCE DAILY
  25. XYLOCAINE [Concomitant]
     Dosage: UNK
     Dates: start: 20051104, end: 20051114
  26. VECURONIUM BROMIDE [Concomitant]
     Dosage: UNK
     Dates: start: 20051104, end: 20051104
  27. AMICAR [Concomitant]
     Dosage: UNK
     Route: 042
     Dates: start: 20051104

REACTIONS (8)
  - ANXIETY [None]
  - PAIN [None]
  - FEAR [None]
  - INJURY [None]
  - ANHEDONIA [None]
  - UNEVALUABLE EVENT [None]
  - RENAL FAILURE [None]
  - DEPRESSION [None]
